FAERS Safety Report 9394360 (Version 2)
Quarter: 2013Q3

REPORT INFORMATION
  Report Type: Spontaneous
  Country: PE (occurrence: PE)
  Receive Date: 20130711
  Receipt Date: 20130826
  Transmission Date: 20140515
  Serious: Yes (Other)
  Sender: FDA-Public Use
  Company Number: PE-ROCHE-1246396

PATIENT
  Sex: 0

DRUGS (5)
  1. XOLAIR [Suspect]
     Indication: ASTHMA
     Dosage: DOSE  : 150.
     Route: 058
     Dates: start: 201304, end: 201307
  2. SPIRIVA [Concomitant]
  3. SYMBICORT [Concomitant]
  4. SINGULAIR [Concomitant]
  5. PREDNISONE [Concomitant]

REACTIONS (2)
  - Angioedema [Unknown]
  - Face oedema [Recovered/Resolved]
